FAERS Safety Report 5241591-0 (Version None)
Quarter: 2007Q1

REPORT INFORMATION
  Report Type: 
  Country: None (occurrence: None)
  Receive Date: 20061208
  Receipt Date: 20050817
  Transmission Date: 20070707
  Serious: Yes (Other)
  Sender: FDA-Public Use
  Company Number: 2005UW12203

PATIENT
  Age: 70 Year
  Sex: Male
  Weight: 90.718 kg

DRUGS (2)
  1. CRESTOR [Suspect]
     Indication: HYPERCHOLESTEROLAEMIA
     Dosage: 10  MG QD PO
     Route: 048
     Dates: start: 20050501
  2. ALLEGRA [Concomitant]

REACTIONS (1)
  - BLOOD URINE PRESENT [None]
